FAERS Safety Report 6299242-2 (Version None)
Quarter: 2009Q3

REPORT INFORMATION
  Report Type: 
  Country: None (occurrence: None)
  Receive Date: 20090803
  Receipt Date: 20090715
  Transmission Date: 20100115
  Serious: Yes (Hospitalization)
  Sender: FDA-Public Use
  Company Number: 2008AL008245

PATIENT
  Age: 54 Year
  Sex: Female

DRUGS (24)
  1. DIGOXIN [Suspect]
     Dosage: 0.125MG, DAILY, PO
     Route: 048
  2. LOPRESSOR [Concomitant]
  3. HYDRALAZINE HCL [Concomitant]
  4. LASIX [Concomitant]
  5. RENAGEL [Concomitant]
  6. PLAVIX [Concomitant]
  7. ZOCOR [Concomitant]
  8. NORVASC [Concomitant]
  9. SIMVASTATIN [Concomitant]
  10. CALCITRIOL [Concomitant]
  11. CLOPIDOGREL [Concomitant]
  12. ASPIRIN [Concomitant]
  13. NEPHROCAPS [Concomitant]
  14. POTASSIUM CHLORIDE [Concomitant]
  15. MIRALAX [Concomitant]
  16. GENTAMICIN [Concomitant]
  17. LANSOPRAZOLE [Concomitant]
  18. CLONIDINE [Concomitant]
  19. BETADINE [Concomitant]
  20. CEFDINIR [Concomitant]
  21. METOPROLOL [Concomitant]
  22. LISINOPRIL [Concomitant]
  23. DARBEPOETIN [Concomitant]
  24. ISOSORBIDE [Concomitant]

REACTIONS (12)
  - ANAEMIA [None]
  - ASTHENIA [None]
  - BLOOD PRESSURE INCREASED [None]
  - CARDIAC ENZYMES INCREASED [None]
  - CHEST PAIN [None]
  - FATIGUE [None]
  - GASTROINTESTINAL DISORDER [None]
  - INCORRECT DOSE ADMINISTERED [None]
  - ISCHAEMIA [None]
  - MALAISE [None]
  - NAUSEA [None]
  - PAIN IN EXTREMITY [None]
